FAERS Safety Report 22831363 (Version 2)
Quarter: 2023Q4

REPORT INFORMATION
  Report Type: Report from Study
  Country: BR (occurrence: BR)
  Receive Date: 20230817
  Receipt Date: 20231018
  Transmission Date: 20240110
  Serious: Yes (Other)
  Sender: FDA-Public Use
  Company Number: BR-002147023-NVSC2023BR177383

PATIENT
  Age: 69 Year
  Sex: Female

DRUGS (2)
  1. COSENTYX [Suspect]
     Active Substance: SECUKINUMAB
     Indication: Product used for unknown indication
     Dosage: UNK
     Route: 065
  2. PARLODEL [Suspect]
     Active Substance: BROMOCRIPTINE MESYLATE
     Indication: Pituitary tumour
     Dosage: UNK
     Route: 065

REACTIONS (10)
  - Brain neoplasm [Unknown]
  - Cerebrovascular accident [Recovered/Resolved]
  - Skin cancer [Unknown]
  - Tumour compression [Unknown]
  - Epilepsy [Recovered/Resolved]
  - Amnesia [Unknown]
  - Skin exfoliation [Unknown]
  - Skin haemorrhage [Unknown]
  - Drug hypersensitivity [Unknown]
  - Blood prolactin decreased [Unknown]

NARRATIVE: CASE EVENT DATE: 20230701
